FAERS Safety Report 9192133 (Version 1)
Quarter: 2013Q1

REPORT INFORMATION
  Report Type: Spontaneous
  Country: NO (occurrence: None)
  Receive Date: 20130325
  Receipt Date: 20130325
  Transmission Date: 20140127
  Serious: Yes (Other)
  Sender: FDA-Public Use
  Company Number: 2013-05043

PATIENT
  Sex: Female

DRUGS (2)
  1. METFORMIN HYDROCHLORIDE (UNKNOWN) [Suspect]
     Indication: PRODUCT USED FOR UNKNOWN INDICATION
     Dates: start: 2007
  2. GALVUS [Suspect]
     Dates: start: 201203

REACTIONS (4)
  - Latent autoimmune diabetes in adults [None]
  - Blood glucose increased [None]
  - Glycosylated haemoglobin increased [None]
  - Drug ineffective [None]
